FAERS Safety Report 19022446 (Version 1)
Quarter: 2021Q1

REPORT INFORMATION
  Report Type: Spontaneous
  Country: AR (occurrence: AR)
  Receive Date: 20210317
  Receipt Date: 20210317
  Transmission Date: 20210420
  Serious: Yes (Other)
  Sender: FDA-Public Use
  Company Number: AR-FRESENIUS KABI-FK202102623

PATIENT
  Age: 5 Year
  Sex: Male

DRUGS (6)
  1. AMIKACIN. [Suspect]
     Active Substance: AMIKACIN
     Indication: FOURNIER^S GANGRENE
     Route: 065
  2. CLINDAMYCIN. [Suspect]
     Active Substance: CLINDAMYCIN
     Indication: FOURNIER^S GANGRENE
     Route: 065
  3. MEROPENEM. [Suspect]
     Active Substance: MEROPENEM
     Indication: FOURNIER^S GANGRENE
     Route: 065
  4. VANCOMYCIN (MANUFACTURER UNKNOWN) [Suspect]
     Active Substance: VANCOMYCIN
     Indication: FOURNIER^S GANGRENE
     Route: 065
  5. SULFAMETHOXAZOLE/TRIMETHOPRIM [Suspect]
     Active Substance: SULFAMETHOXAZOLE\TRIMETHOPRIM
     Indication: PROPHYLAXIS
     Route: 065
  6. MEPREDNISONE [Concomitant]
     Active Substance: MEPREDNISONE
     Indication: NEPHROTIC SYNDROME
     Route: 065

REACTIONS (2)
  - Candida infection [Recovered/Resolved]
  - Urinary tract infection [Recovered/Resolved]
